FAERS Safety Report 8310454-6 (Version None)
Quarter: 2012Q2

REPORT INFORMATION
  Report Type: 
  Country: None (occurrence: None)
  Receive Date: 20120425
  Receipt Date: 20120416
  Transmission Date: 20120825
  Serious: Yes (Other)
  Sender: FDA-Public Use
  Company Number: IT-JNJFOC-20120406997

PATIENT
  Age: 40 Year
  Sex: Female

DRUGS (6)
  1. INVEGA [Suspect]
     Route: 048
     Dates: start: 20120416, end: 20120416
  2. INVEGA [Suspect]
     Indication: PRODUCT USED FOR UNKNOWN INDICATION
     Route: 048
  3. DELORAZEPAM [Suspect]
     Indication: SELF INJURIOUS BEHAVIOUR
     Route: 048
     Dates: start: 20120416, end: 20120416
  4. TEGRETOL [Suspect]
     Indication: SELF INJURIOUS BEHAVIOUR
     Route: 048
     Dates: start: 20120416, end: 20120416
  5. ENTUMIN [Suspect]
     Indication: SELF INJURIOUS BEHAVIOUR
     Route: 048
     Dates: start: 20120416, end: 20120416
  6. FLUVOXAMINE MALEATE [Suspect]
     Indication: SELF INJURIOUS BEHAVIOUR
     Route: 048
     Dates: start: 20120416, end: 20120416

REACTIONS (3)
  - SELF INJURIOUS BEHAVIOUR [None]
  - SLUGGISHNESS [None]
  - MULTIPLE DRUG OVERDOSE INTENTIONAL [None]
